FAERS Safety Report 21003155 (Version 1)
Quarter: 2022Q2

REPORT INFORMATION
  Report Type: Other
  Country: CA (occurrence: CA)
  Receive Date: 20220624
  Receipt Date: 20220624
  Transmission Date: 20220720
  Serious: Yes (Other)
  Sender: FDA-Public Use
  Company Number: CA-APOTEX-2022AP009516

PATIENT
  Age: 55 Year
  Sex: Female

DRUGS (1)
  1. DULOXETINE [Suspect]
     Active Substance: DULOXETINE
     Indication: Product used for unknown indication
     Dosage: 30 MILLIGRAM, QD
     Route: 048

REACTIONS (6)
  - Bradycardia [Unknown]
  - Concussion [Unknown]
  - Head injury [Unknown]
  - Hypotension [Unknown]
  - Dizziness [Unknown]
  - Syncope [Unknown]
